FAERS Safety Report 5288096-9 (Version None)
Quarter: 2007Q1

REPORT INFORMATION
  Report Type: 
  Country: None (occurrence: None)
  Receive Date: 20070118
  Receipt Date: 20061211
  Transmission Date: 20070707
  Serious: Yes (Other)
  Sender: FDA-Public Use
  Company Number: HQWYE189314DEC06

PATIENT
  Age: 82 Year
  Sex: Female
  Weight: 52.21 kg

DRUGS (1)
  1. ADVIL PM [Suspect]
     Indication: INSOMNIA
     Dosage: 1 CAPLET AT BEDTIME AS NEEDED, ORAL
     Route: 048
     Dates: start: 20061101

REACTIONS (1)
  - DRUG INEFFECTIVE [None]
